FAERS Safety Report 17887412 (Version 2)
Quarter: 2020Q2

REPORT INFORMATION
  Report Type: Spontaneous
  Country: PL (occurrence: PL)
  Receive Date: 20200612
  Receipt Date: 20200616
  Transmission Date: 20200714
  Serious: Yes (Other)
  Sender: FDA-Public Use
  Company Number: PL-BAXTER-2020BAX011711

PATIENT
  Age: 70 Year
  Sex: Female

DRUGS (9)
  1. PACLITAXEL. [Suspect]
     Active Substance: PACLITAXEL
     Indication: METASTASES TO BONE
  2. FLUOROURACIL. [Suspect]
     Active Substance: FLUOROURACIL
     Indication: BREAST CANCER
     Dosage: FLUOROURACIL/DOXORUBICIN/CYCLOPHOSPHAMIDE REGIMEN
     Route: 065
     Dates: start: 2015, end: 201512
  3. ENDOXAN [Suspect]
     Active Substance: CYCLOPHOSPHAMIDE
     Indication: METASTASES TO BONE
     Dosage: DOXORUBICIN/CYCLOPHOSPHAMIDE/FLUOROURACIL REGIMEN
     Route: 065
     Dates: start: 2015, end: 201512
  4. DOXORUBICIN [Suspect]
     Active Substance: DOXORUBICIN
     Indication: BREAST CANCER
     Dosage: DOXORUBICIN/CYCLOPHOSPHAMIDE/PACLITAXEL REGIMEN
     Route: 065
     Dates: start: 2015
  5. FLUOROURACIL. [Suspect]
     Active Substance: FLUOROURACIL
     Indication: METASTASES TO BONE
  6. ENDOXAN [Suspect]
     Active Substance: CYCLOPHOSPHAMIDE
     Indication: BREAST CANCER
     Dosage: DOXORUBICIN/CYCLOPHOSPHAMIDE/PACLITAXEL REGIMEN
     Route: 065
     Dates: start: 2015
  7. DOXORUBICIN [Suspect]
     Active Substance: DOXORUBICIN
     Indication: METASTASES TO BONE
     Dosage: FLUOROURACIL/DOXORUBICIN/CYCLOPHOSPHAMIDE SCHEME
     Route: 065
     Dates: start: 2015, end: 201512
  8. ZOLEDRONIC ACID [Concomitant]
     Active Substance: ZOLEDRONIC ACID
     Indication: PROPHYLAXIS
     Route: 042
     Dates: start: 2015
  9. PACLITAXEL. [Suspect]
     Active Substance: PACLITAXEL
     Indication: BREAST CANCER
     Dosage: DOXORUBICIN/CYCLOPHOSPHAMIDE/PACLITAXEL REGIMEN
     Route: 065
     Dates: start: 2015

REACTIONS (3)
  - Anaemia [Unknown]
  - Atrial fibrillation [Unknown]
  - Neutropenia [Unknown]

NARRATIVE: CASE EVENT DATE: 2015
